FAERS Safety Report 13088389 (Version 8)
Quarter: 2017Q1

REPORT INFORMATION
  Report Type: Spontaneous
  Country: US (occurrence: US)
  Receive Date: 20170105
  Receipt Date: 20170303
  Transmission Date: 20170428
  Serious: Yes (Hospitalization, Other)
  Sender: FDA-Public Use
  Company Number: US-PFIZER INC-2016580953

PATIENT
  Age: 81 Year
  Sex: Female
  Weight: 74.83 kg

DRUGS (15)
  1. METOPROLOL. [Concomitant]
     Active Substance: METOPROLOL
     Dosage: UNK
  2. TYLENOL WITH CODEINE [Concomitant]
     Active Substance: ACETAMINOPHEN\CODEINE PHOSPHATE
     Dosage: UNK
  3. SUTENT [Suspect]
     Active Substance: SUNITINIB MALATE
     Dosage: 37.5 MG, DAILY (37.5MG ONE CAPSULE BY MOUTH DAILY)
     Route: 048
     Dates: start: 20161215
  4. GLIPIZIDE. [Concomitant]
     Active Substance: GLIPIZIDE
     Dosage: UNK
  5. ZANTAC [Concomitant]
     Active Substance: RANITIDINE HYDROCHLORIDE
     Dosage: UNK
  6. SUTENT [Suspect]
     Active Substance: SUNITINIB MALATE
     Indication: RENAL CANCER METASTATIC
     Dosage: 37.5 MG, CYCLIC (28 DAYS ON/14 DAYS OFF)
  7. XANAX [Concomitant]
     Active Substance: ALPRAZOLAM
     Dosage: UNK
  8. PRAVASTATIN. [Concomitant]
     Active Substance: PRAVASTATIN
     Dosage: UNK
  9. ASPIRIN. [Concomitant]
     Active Substance: ASPIRIN
     Dosage: UNK
  10. SUTENT [Suspect]
     Active Substance: SUNITINIB MALATE
     Dosage: 37.5 MG, ALTERNATE DAY(EVERY OTHER DAY) (AT 7 O^ CLOCK AT NIGHT)
     Dates: start: 20170105
  11. TORSEMIDE. [Concomitant]
     Active Substance: TORSEMIDE
     Dosage: UNK UNK, AS NEEDED
  12. SUTENT [Suspect]
     Active Substance: SUNITINIB MALATE
     Dosage: UNK
     Dates: start: 20170101, end: 20170105
  13. COMPAZINE [Concomitant]
     Active Substance: PROCHLORPERAZINE MALEATE
     Dosage: UNK
  14. INSULIN [Concomitant]
     Active Substance: INSULIN NOS
     Indication: DIABETES MELLITUS
     Dosage: UNK
  15. SUTENT [Suspect]
     Active Substance: SUNITINIB MALATE
     Dosage: 37.5 MG, ALTERNATE DAY(EVERY OTHER DAY) (AT 7 O^ CLOCK AT NIGHT)
     Route: 048
     Dates: start: 20170106

REACTIONS (41)
  - Renal impairment [Unknown]
  - Dizziness [Unknown]
  - Mucosal dryness [Unknown]
  - Eye disorder [Unknown]
  - Dysphagia [Unknown]
  - Dysstasia [Unknown]
  - Weight increased [Unknown]
  - Sensation of foreign body [Unknown]
  - Mutism [Unknown]
  - Dyspnoea [Unknown]
  - Joint swelling [Unknown]
  - Constipation [Unknown]
  - Epistaxis [Unknown]
  - Malaise [Recovered/Resolved]
  - Night sweats [Unknown]
  - Asthenia [Unknown]
  - Nausea [Not Recovered/Not Resolved]
  - Peripheral swelling [Unknown]
  - Breast pain [Unknown]
  - Incontinence [Unknown]
  - Feeling abnormal [Unknown]
  - Activities of daily living impaired [Unknown]
  - Pulmonary oedema [Unknown]
  - Blood glucose decreased [Not Recovered/Not Resolved]
  - Fluid retention [Recovering/Resolving]
  - Depression [Unknown]
  - Back pain [Unknown]
  - Shock hypoglycaemic [Unknown]
  - Pyrexia [Unknown]
  - Decreased appetite [Unknown]
  - Abdominal distension [Unknown]
  - Gait disturbance [Unknown]
  - Swelling [Recovering/Resolving]
  - Gastrointestinal motility disorder [Unknown]
  - Vomiting [Recovering/Resolving]
  - Gastroenteritis viral [Recovered/Resolved]
  - Generalised oedema [Unknown]
  - Dry skin [Unknown]
  - Dyspepsia [Not Recovered/Not Resolved]
  - Muscular weakness [Unknown]
  - Diarrhoea [Unknown]

NARRATIVE: CASE EVENT DATE: 20161215
